FAERS Safety Report 22520319 (Version 1)
Quarter: 2023Q2

REPORT INFORMATION
  Report Type: Spontaneous
  Country: CN (occurrence: CN)
  Receive Date: 20230605
  Receipt Date: 20230605
  Transmission Date: 20230721
  Serious: Yes (Hospitalization)
  Sender: FDA-Public Use
  Company Number: CN-PFIZER INC-PV202300097215

PATIENT
  Age: 20 Year
  Sex: Male
  Weight: 63 kg

DRUGS (2)
  1. MEDROL [Suspect]
     Active Substance: METHYLPREDNISOLONE
     Indication: Prophylaxis against transplant rejection
     Dosage: 12 MG, 1X/DAY
     Route: 048
     Dates: start: 20230320, end: 20230530
  2. RUXOLITINIB [Concomitant]
     Active Substance: RUXOLITINIB
     Indication: Prophylaxis against transplant rejection
     Dosage: UNK
     Dates: start: 20230320

REACTIONS (4)
  - Hepatic enzyme increased [Unknown]
  - Cushingoid [Unknown]
  - Hypertrichosis [Unknown]
  - Acne [Unknown]

NARRATIVE: CASE EVENT DATE: 20230101
